FAERS Safety Report 4313738-1 (Version None)
Quarter: 2004Q1

REPORT INFORMATION
  Report Type: 
  Country: None (occurrence: None)
  Receive Date: 20040308
  Receipt Date: 20040218
  Transmission Date: 20041129
  Serious: Yes (Hospitalization, Other)
  Sender: FDA-Public Use
  Company Number: US-BRISTOL-MYERS SQUIBB COMPANY-12510368

PATIENT
  Age: 72 Year
  Sex: Male
  Weight: 83 kg

DRUGS (4)
  1. COUMADIN [Suspect]
     Route: 048
  2. PLAVIX [Suspect]
     Indication: TRANSIENT ISCHAEMIC ATTACK
     Dosage: BEGAN 2.5 YRS AGO,STOPPED ABOUT 1 YR AGO AND RESTARTED 6 MONTHS AGO
     Route: 048
  3. LIPITOR [Concomitant]
     Dosage: ^FOR 3-4 YEARS^
  4. NORVASC [Concomitant]
     Dosage: ^FOR 3-4 YEARS^

REACTIONS (4)
  - CEREBROVASCULAR ACCIDENT [None]
  - DIPLOPIA [None]
  - IDIOPATHIC THROMBOCYTOPENIC PURPURA [None]
  - TRANSIENT ISCHAEMIC ATTACK [None]
